FAERS Safety Report 7243155-6 (Version None)
Quarter: 2011Q1

REPORT INFORMATION
  Report Type: 
  Country: None (occurrence: None)
  Receive Date: 20110125
  Receipt Date: 20110119
  Transmission Date: 20110831
  Serious: Yes (Other)
  Sender: FDA-Public Use
  Company Number: GR-GENZYME-CAMP-1001289

PATIENT
  Age: 44 Year
  Sex: Male

DRUGS (7)
  1. CAMPATH [Suspect]
     Indication: ACUTE MYELOID LEUKAEMIA
     Dosage: 10 MG, QD ON DAYS -2 AND -1
     Route: 042
  2. ACYCLOVIR [Concomitant]
     Indication: ANTIVIRAL PROPHYLAXIS
     Dosage: 400 MG, BID
     Route: 065
  3. EPOGEN [Concomitant]
     Indication: APLASIA PURE RED CELL
     Route: 065
  4. BUSULFAN [Suspect]
     Indication: ACUTE MYELOID LEUKAEMIA
     Dosage: UNK
     Route: 042
  5. METHOTREXATE [Concomitant]
     Indication: PROPHYLAXIS AGAINST GRAFT VERSUS HOST DISEASE
     Dosage: 5 MG/M2, QD ON DAYS 1 AND 3
     Route: 065
  6. CYCLOPHOSPHAMIDE [Suspect]
     Indication: ACUTE MYELOID LEUKAEMIA
     Dosage: UNK
     Route: 042
  7. CYCLOSPORINE [Concomitant]
     Indication: PROPHYLAXIS AGAINST GRAFT VERSUS HOST DISEASE
     Dosage: DISCONTINUED ON DAY 105
     Route: 065

REACTIONS (4)
  - APLASIA PURE RED CELL [None]
  - HUMAN HERPESVIRUS 6 INFECTION [None]
  - TRANSPLANT FAILURE [None]
  - IMMUNOSUPPRESSION [None]
